FAERS Safety Report 7040995-3 (Version None)
Quarter: 2010Q4

REPORT INFORMATION
  Report Type: 
  Country: None (occurrence: None)
  Receive Date: 20101013
  Receipt Date: 20100928
  Transmission Date: 20110411
  Serious: Yes (Hospitalization, Other)
  Sender: FDA-Public Use
  Company Number: PHHY2010JP61586

PATIENT
  Age: 69 Year
  Sex: Male

DRUGS (4)
  1. DIOVAN [Suspect]
     Indication: HYPERTENSION
     Dosage: 160 MG
     Route: 048
  2. DIOVAN [Suspect]
     Dosage: 10 MG DAILY
  3. EPLERENONE [Concomitant]
  4. DOXAZOSIN MESYLATE [Concomitant]
     Indication: BLOOD PRESSURE MANAGEMENT

REACTIONS (5)
  - BLOOD UREA INCREASED [None]
  - PAIN [None]
  - RENAL ARTERY STENOSIS [None]
  - RENAL FAILURE ACUTE [None]
  - RENAL IMPAIRMENT [None]
